FAERS Safety Report 7231689-X (Version None)
Quarter: 2011Q1

REPORT INFORMATION
  Report Type: 
  Country: None (occurrence: None)
  Receive Date: 20110118
  Receipt Date: 20110107
  Transmission Date: 20110831
  Serious: Yes (Other)
  Sender: FDA-Public Use
  Company Number: MW-B.I. PHARMACEUTICALS,INC./RIDGEFIELD-2011-DE-00225GD

PATIENT
  Sex: Female

DRUGS (3)
  1. TRIOMUNE [Suspect]
     Indication: HIV INFECTION
     Dosage: STANDARD FIXED-DOSE COMBINATION; ONE-HALF TABLET IN THE MORNING, ONE-FOURTH TABLET IN THE EVENING
     Dates: start: 20060401, end: 20080401
  2. TRIOMUNE [Suspect]
     Dosage: FIXED-DOSE NVP/D4T 30 MG/3TC; THREE-FOURTH TABLET IN THE MORNING, ONE-HALF TABLET IN THE EVENING
     Dates: start: 20080501
  3. AMOXICILLIN AND CLAVULANATE POTASSIUM [Concomitant]
     Indication: RESPIRATORY TRACT INFECTION

REACTIONS (5)
  - LACTIC ACIDOSIS [None]
  - NAUSEA [None]
  - DECREASED APPETITE [None]
  - ASTHENIA [None]
  - VOMITING [None]
